FAERS Safety Report 17800432 (Version 1)
Quarter: 2020Q2

REPORT INFORMATION
  Report Type: Spontaneous
  Country: CN (occurrence: CN)
  Receive Date: 20200518
  Receipt Date: 20200518
  Transmission Date: 20200714
  Serious: Yes (Other)
  Sender: FDA-Public Use
  Company Number: CN-ELI_LILLY_AND_COMPANY-CN202005006205

PATIENT
  Age: 32 Year
  Sex: Male

DRUGS (4)
  1. SODIUM VALPROATE [Concomitant]
     Active Substance: VALPROATE SODIUM
     Indication: MANIA
     Dosage: 1.5 DOSAGE FORM, DAILY
     Route: 065
  2. CHLORPROMAZINE. [Concomitant]
     Active Substance: CHLORPROMAZINE
     Indication: MANIA
     Dosage: UNK UNK, UNKNOWN
     Route: 065
  3. OLANZAPINE. [Suspect]
     Active Substance: OLANZAPINE
     Indication: MANIA
     Dosage: 20 MG, DAILY
     Route: 065
  4. CHLORPROMAZINE. [Concomitant]
     Active Substance: CHLORPROMAZINE
     Dosage: 400 MG, DAILY
     Route: 065
     Dates: end: 201608

REACTIONS (2)
  - Somnolence [Recovered/Resolved]
  - Neutropenia [Recovered/Resolved]
